FAERS Safety Report 10584046 (Version 4)
Quarter: 2015Q1

REPORT INFORMATION
  Report Type: Spontaneous
  Country: CA (occurrence: CA)
  Receive Date: 20141114
  Receipt Date: 20150109
  Transmission Date: 20150720
  Serious: Yes (Other)
  Sender: FDA-Public Use
  Company Number: CA-PFIZER INC-2014289300

PATIENT
  Age: 52 Year
  Sex: Male

DRUGS (5)
  1. BENEFIX [Suspect]
     Active Substance: COAGULATION FACTOR IX RECOMBINANT HUMAN\ISOPROPYL ALCOHOL
     Dosage: 4000 IU, DAILY
     Route: 042
     Dates: start: 20141106
  2. BENEFIX [Suspect]
     Active Substance: COAGULATION FACTOR IX RECOMBINANT HUMAN\ISOPROPYL ALCOHOL
     Dosage: 8000 IU, ALTERNATE DAY
     Route: 042
     Dates: start: 20141114
  3. BENEFIX [Suspect]
     Active Substance: COAGULATION FACTOR IX RECOMBINANT HUMAN\ISOPROPYL ALCOHOL
     Dosage: 8000 IU, UNK
     Route: 042
     Dates: start: 20141104, end: 20141104
  4. NOVORAPID [Concomitant]
     Active Substance: INSULIN ASPART
     Indication: DIABETES MELLITUS
     Dosage: 10 IU, UNK
  5. BENEFIX [Suspect]
     Active Substance: COAGULATION FACTOR IX RECOMBINANT HUMAN\ISOPROPYL ALCOHOL
     Indication: FACTOR IX DEFICIENCY
     Dosage: 6000 IU, 2X/DAY
     Route: 042
     Dates: start: 20141016

REACTIONS (24)
  - Joint injury [Unknown]
  - Dehydration [Unknown]
  - Catheter site related reaction [Unknown]
  - Pallor [Unknown]
  - Crying [Unknown]
  - Ketonuria [Unknown]
  - Myalgia [Recovering/Resolving]
  - Haemorrhage [Not Recovered/Not Resolved]
  - Poor quality sleep [Not Recovered/Not Resolved]
  - Joint swelling [Unknown]
  - Depressed mood [Unknown]
  - Breakthrough pain [Recovering/Resolving]
  - Thirst [Unknown]
  - Chest pain [Recovered/Resolved]
  - Catheter site pruritus [Unknown]
  - Back pain [Not Recovered/Not Resolved]
  - Hyperhidrosis [Unknown]
  - Arthralgia [Unknown]
  - Musculoskeletal stiffness [Not Recovered/Not Resolved]
  - Blood glucose increased [Unknown]
  - Contusion [Recovering/Resolving]
  - Pain [Not Recovered/Not Resolved]
  - Malaise [Unknown]
  - Gait disturbance [Not Recovered/Not Resolved]

NARRATIVE: CASE EVENT DATE: 2014
